FAERS Safety Report 14541014 (Version 1)
Quarter: 2018Q1

REPORT INFORMATION
  Report Type: Spontaneous
  Country: DE (occurrence: DE)
  Receive Date: 20180216
  Receipt Date: 20180216
  Transmission Date: 20180509
  Serious: Yes (Hospitalization)
  Sender: FDA-Public Use
  Company Number: DE-TEVA-2018-DE-855888

PATIENT
  Sex: Male
  Weight: 80 kg

DRUGS (1)
  1. SILDENAFIL ABZ [Suspect]
     Active Substance: SILDENAFIL
     Route: 048

REACTIONS (2)
  - Pharyngeal abscess [Recovering/Resolving]
  - Oropharyngeal pain [Recovering/Resolving]
